FAERS Safety Report 9049507 (Version 2)
Quarter: 2013Q1

REPORT INFORMATION
  Report Type: Spontaneous
  Country: US (occurrence: US)
  Receive Date: 20130205
  Receipt Date: 20130306
  Transmission Date: 20140127
  Serious: Yes (Other)
  Sender: FDA-Public Use
  Company Number: US-PFIZER INC-2013043910

PATIENT
  Age: 59 Year
  Sex: Female
  Weight: 111 kg

DRUGS (3)
  1. CYTOMEL [Suspect]
     Indication: BASEDOW^S DISEASE
     Dosage: 50 UG, DAILY
  2. CYTOMEL [Suspect]
     Dosage: 25 UG, 2X/DAY
  3. TOPROL [Concomitant]
     Indication: ARRHYTHMIA
     Dosage: 25 MG, DAILY

REACTIONS (4)
  - Angina pectoris [Recovered/Resolved]
  - Tri-iodothyronine increased [Unknown]
  - Tremor [Not Recovered/Not Resolved]
  - Nervousness [Unknown]
